FAERS Safety Report 15169094 (Version 2)
Quarter: 2018Q3

REPORT INFORMATION
  Report Type: Spontaneous
  Country: US (occurrence: US)
  Receive Date: 20180720
  Receipt Date: 20180921
  Transmission Date: 20181010
  Serious: Yes (Other)
  Sender: FDA-Public Use
  Company Number: US-IGSA-SR10006326

PATIENT
  Age: 69 Year
  Sex: Male

DRUGS (1)
  1. FLEBOGAMMA DIF [Suspect]
     Active Substance: HUMAN IMMUNOGLOBULIN G
     Indication: PRODUCT USED FOR UNKNOWN INDICATION
     Dosage: 40 G, QD
     Route: 042
     Dates: start: 20171009, end: 20171012

REACTIONS (3)
  - Blood pressure decreased [Unknown]
  - Hyperhidrosis [Unknown]
  - Pallor [Unknown]

NARRATIVE: CASE EVENT DATE: 20171012
